FAERS Safety Report 9481949 (Version 2)
Quarter: 2013Q4

REPORT INFORMATION
  Report Type: Spontaneous
  Country: US (occurrence: US)
  Receive Date: 20130828
  Receipt Date: 20131030
  Transmission Date: 20140711
  Serious: Yes (Other)
  Sender: FDA-Public Use
  Company Number: US-PFIZER INC-2013246984

PATIENT
  Sex: Female

DRUGS (4)
  1. PRISTIQ [Suspect]
     Indication: DEPRESSION
     Dosage: 100 MG, UNK
     Route: 048
     Dates: start: 20110415
  2. PRISTIQ [Suspect]
     Dosage: 15 MG, UNK
     Route: 048
  3. PRISTIQ [Suspect]
     Dosage: 10 MG, UNK
     Route: 048
     Dates: end: 201308
  4. KLONOPIN [Concomitant]
     Indication: SLEEP DISORDER
     Dosage: 2 MG, HS
     Route: 048

REACTIONS (3)
  - Withdrawal syndrome [Unknown]
  - Nausea [Recovered/Resolved]
  - Vertigo [Recovered/Resolved]
